FAERS Safety Report 4699518-6 (Version None)
Quarter: 2005Q2

REPORT INFORMATION
  Report Type: 
  Country: None (occurrence: None)
  Receive Date: 20050622
  Receipt Date: 20050608
  Transmission Date: 20051028
  Serious: Yes (Death, Other)
  Sender: FDA-Public Use
  Company Number: CN-2005-010167

PATIENT
  Age: 69 Year
  Sex: Male
  Weight: 70 kg

DRUGS (5)
  1. FLUDARA [Suspect]
     Indication: B-CELL SMALL LYMPHOCYTIC LYMPHOMA STAGE IV
     Dosage: 40 MG, INTRAVENOUS
     Route: 042
     Dates: start: 20050401, end: 20050401
  2. FLUDARA [Suspect]
     Indication: MALIGNANT NEOPLASM PROGRESSION
     Dosage: 40 MG, INTRAVENOUS
     Route: 042
     Dates: start: 20050401, end: 20050401
  3. FLUDARA [Suspect]
     Indication: B-CELL SMALL LYMPHOCYTIC LYMPHOMA STAGE IV
     Dosage: 40 MG, INTRAVENOUS
     Route: 042
     Dates: start: 20050506, end: 20050509
  4. FLUDARA [Suspect]
     Indication: MALIGNANT NEOPLASM PROGRESSION
     Dosage: 40 MG, INTRAVENOUS
     Route: 042
     Dates: start: 20050506, end: 20050509
  5. HERBAL PREPARATION (GERUITONG, PANNAIJIN, XIONGXIANWUTAI, JIAJINGMIGUA [Concomitant]

REACTIONS (9)
  - CEREBRAL HAEMORRHAGE [None]
  - CHILLS [None]
  - CYANOSIS [None]
  - DYSPHORIA [None]
  - FOAMING AT MOUTH [None]
  - HAEMATOCHEZIA [None]
  - LOSS OF CONSCIOUSNESS [None]
  - PYREXIA [None]
  - THERAPY NON-RESPONDER [None]
